FAERS Safety Report 23456633 (Version 2)
Quarter: 2024Q1

REPORT INFORMATION
  Report Type: Spontaneous
  Country: JP (occurrence: JP)
  Receive Date: 20240130
  Receipt Date: 20240207
  Transmission Date: 20240409
  Serious: Yes (Death, Other)
  Sender: FDA-Public Use
  Company Number: JP-MSD-M2024-02168

PATIENT
  Age: 73 Year
  Sex: Male

DRUGS (3)
  1. LAGEVRIO [Suspect]
     Active Substance: MOLNUPIRAVIR
     Indication: COVID-19 treatment
     Dosage: 800 MILLIGRAM, BID
     Route: 048
     Dates: start: 20240120, end: 202401
  2. CALONAL [Concomitant]
     Active Substance: ACETAMINOPHEN
     Indication: COVID-19 treatment
     Dosage: 300 MILLIGRAM, TID
     Route: 048
     Dates: start: 20240119, end: 20240120
  3. EPRAZINONE [Concomitant]
     Active Substance: EPRAZINONE
     Indication: COVID-19 treatment
     Dosage: UNK, TID
     Route: 048
     Dates: start: 20240119, end: 20240120

REACTIONS (3)
  - Myocardial infarction [Fatal]
  - Coagulopathy [Fatal]
  - COVID-19 [Unknown]

NARRATIVE: CASE EVENT DATE: 20240101
